FAERS Safety Report 6832390-4 (Version None)
Quarter: 2010Q3

REPORT INFORMATION
  Report Type: 
  Country: None (occurrence: None)
  Receive Date: 20100712
  Receipt Date: 20100701
  Transmission Date: 20110219
  Serious: Yes (Hospitalization)
  Sender: FDA-Public Use
  Company Number: US-WATSON-2009-10882

PATIENT
  Sex: Male

DRUGS (7)
  1. FENTANYL-75 [Suspect]
     Indication: BACK PAIN
     Dosage: 275 MCG TOTAL Q 3 DAYS
     Route: 062
     Dates: start: 20090901, end: 20100301
  2. FENTANYL-75 [Suspect]
     Indication: CONGENITAL CYSTIC KIDNEY DISEASE
     Dosage: 275 MCG TOTAL Q 3 DAYS
     Route: 062
     Dates: start: 20090901, end: 20100301
  3. FENTANYL-100 [Suspect]
     Indication: BACK PAIN
     Dosage: 275 MCG TOTAL Q 3 DAYS
     Route: 062
     Dates: start: 20090901, end: 20100301
  4. FENTANYL-100 [Suspect]
     Indication: CONGENITAL CYSTIC KIDNEY DISEASE
     Dosage: 275 MCG TOTAL Q 3 DAYS
     Route: 062
     Dates: start: 20090901, end: 20100301
  5. FENTANYL-25 [Suspect]
     Indication: PRODUCT USED FOR UNKNOWN INDICATION
     Dosage: UNK
     Route: 062
     Dates: end: 20100301
  6. ROXANOL [Concomitant]
     Indication: BREAKTHROUGH PAIN
     Dosage: UNK
     Route: 065
  7. LOTREL [Concomitant]
     Indication: BLOOD PRESSURE
     Dosage: 5/20 MG BID
     Route: 048

REACTIONS (9)
  - APPLICATION SITE INFECTION [None]
  - APPLICATION SITE ULCER [None]
  - BLOOD TESTOSTERONE DECREASED [None]
  - DEHYDRATION [None]
  - DRUG INEFFECTIVE [None]
  - LIBIDO DECREASED [None]
  - RENAL IMPAIRMENT [None]
  - URINE OUTPUT DECREASED [None]
  - WRONG TECHNIQUE IN DRUG USAGE PROCESS [None]
